FAERS Safety Report 24098182 (Version 2)
Quarter: 2024Q3

REPORT INFORMATION
  Report Type: Report from Study
  Country: HN (occurrence: HN)
  Receive Date: 20240716
  Receipt Date: 20240723
  Transmission Date: 20241017
  Serious: Yes (Disabling, Other)
  Sender: MYLAN
  Company Number: HN-MYLANLABS-2024M1065694

PATIENT
  Sex: Female
  Weight: 63.5 kg

DRUGS (1)
  1. LIPITOR [Suspect]
     Active Substance: ATORVASTATIN CALCIUM
     Indication: Dyslipidaemia
     Dosage: 80 MILLIGRAM, QD (1 TABLET DAILY)
     Route: 048

REACTIONS (3)
  - Hip fracture [Not Recovered/Not Resolved]
  - Fall [Not Recovered/Not Resolved]
  - Gait disturbance [Not Recovered/Not Resolved]
